FAERS Safety Report 18670320 (Version 1)
Quarter: 2020Q4

REPORT INFORMATION
  Report Type: Spontaneous
  Country: GB (occurrence: GB)
  Receive Date: 20201228
  Receipt Date: 20201228
  Transmission Date: 20210114
  Serious: Yes (Death, Hospitalization, Other)
  Sender: FDA-Public Use
  Company Number: GB-MYLANLABS-2020M1098819

PATIENT
  Sex: Female

DRUGS (11)
  1. CITALOPRAM [Concomitant]
     Active Substance: CITALOPRAM HYDROBROMIDE
     Indication: DEPRESSION
     Dosage: 10 MILLIGRAM, QD
     Route: 048
     Dates: end: 20201125
  2. METFORMIN [Concomitant]
     Active Substance: METFORMIN HYDROCHLORIDE
     Indication: DIABETES MELLITUS
     Dosage: 1 GRAM, BID
     Route: 048
     Dates: end: 20201125
  3. FUROSEMIDE. [Concomitant]
     Active Substance: FUROSEMIDE
     Indication: ASCITES
     Dosage: 40 MILLIGRAM, MONTHLY
     Route: 048
     Dates: end: 20201125
  4. PREDNISOLONE. [Concomitant]
     Active Substance: PREDNISOLONE
     Indication: COLITIS
     Dosage: 10 MILLIGRAM, MONTHLY
     Route: 048
     Dates: end: 20201125
  5. CLOZARIL [Suspect]
     Active Substance: CLOZAPINE
     Indication: SCHIZOPHRENIA
     Dosage: 50 MILLIGRAM
     Route: 048
     Dates: start: 20050824, end: 20201125
  6. AMISULPRIDE [Concomitant]
     Active Substance: AMISULPRIDE
     Dosage: 50 MILLIGRAM, MONTHLY
     Route: 048
     Dates: start: 2005, end: 20201125
  7. SPIRONOLACTONE. [Concomitant]
     Active Substance: SPIRONOLACTONE
     Indication: ASCITES
     Dosage: 150 MILLIGRAM, MONTHLY
     Route: 048
     Dates: end: 20201125
  8. FERROUS FUMARATE [Concomitant]
     Active Substance: FERROUS FUMARATE
     Indication: IRON DEFICIENCY
     Dosage: 210 MILLIGRAM, TID
     Route: 048
     Dates: end: 20201125
  9. OMEPRAZOLE. [Concomitant]
     Active Substance: OMEPRAZOLE
     Indication: GASTROINTESTINAL DISORDER
     Dosage: 20 MILLIGRAM, MONTHLY
     Route: 048
     Dates: end: 20201125
  10. ADCAL D3 [Concomitant]
     Active Substance: CALCIUM CARBONATE\CHOLECALCIFEROL
     Indication: OSTEOPOROSIS
     Dosage: 2 DOSAGE FORM (2 TAB), BID
     Route: 048
     Dates: end: 20201125
  11. LACTULOSE. [Concomitant]
     Active Substance: LACTULOSE
     Indication: HEPATIC ENCEPHALOPATHY
     Dosage: 10 MILLILITER, BID
     Route: 048
     Dates: end: 20201125

REACTIONS (4)
  - Acute hepatic failure [Fatal]
  - General physical health deterioration [Unknown]
  - Palliative care [Fatal]
  - COVID-19 [Unknown]
